FAERS Safety Report 9672229 (Version 1)
Quarter: 2013Q4

REPORT INFORMATION
  Report Type: Spontaneous
  Country: US (occurrence: US)
  Receive Date: 20131106
  Receipt Date: 20131106
  Transmission Date: 20140711
  Serious: No
  Sender: FDA-Public Use
  Company Number: US-ENDO PHARMACEUTICALS INC.-HCDA20120003

PATIENT
  Age: 68 Year
  Sex: Male
  Weight: 88.53 kg

DRUGS (3)
  1. HYDROCODONE/ACETAMINOPHEN 10MG/325MG [Suspect]
     Indication: PAIN
     Dosage: 10/325 MG
     Route: 048
     Dates: start: 201112, end: 20120109
  2. IBUPROFEN [Concomitant]
     Indication: PAIN
     Dosage: UNKNOWN
     Route: 048
  3. TRAMADOL [Concomitant]
     Indication: PAIN
     Dosage: UNKNOWN
     Route: 048

REACTIONS (3)
  - Insomnia [Not Recovered/Not Resolved]
  - Agitation [Not Recovered/Not Resolved]
  - Cold sweat [Not Recovered/Not Resolved]
